FAERS Safety Report 8661926 (Version 2)
Quarter: 2012Q4

REPORT INFORMATION
  Report Type: 
  Country: US (occurrence: US)
  Receive Date: 20120712
  Receipt Date: 20121016
  Transmission Date: 20130627
  Serious: Yes (Death)
  Sender: FDA-Public Use
  Company Number: US-SHIRE-ALL1-2012-03308

PATIENT
  Age: 50 Year
  Sex: Male

DRUGS (2)
  1. FOSRENOL [Suspect]
     Indication: HYPERPHOSPHATAEMIA
     Dosage: 1000 mg, 2x/day:bid
     Route: 048
     Dates: start: 20110922
  2. FOSRENOL [Suspect]
     Dosage: 500 mg, 1x/day:qd
     Route: 048
     Dates: start: 20110922

REACTIONS (1)
  - Convulsion [Fatal]
